FAERS Safety Report 8770637 (Version 2)
Quarter: 2013Q4

REPORT INFORMATION
  Report Type: Spontaneous
  Country: GB (occurrence: GB)
  Receive Date: 20120907
  Receipt Date: 20131002
  Transmission Date: 20140711
  Serious: Yes (Other)
  Sender: FDA-Public Use
  Company Number: GB-TEVA-356487ISR

PATIENT
  Age: 52 Year
  Sex: Male

DRUGS (2)
  1. LISINOPRIL [Suspect]
     Indication: HYPERTENSION
     Dosage: AT NIGHT
     Route: 048
     Dates: start: 20120731, end: 20120801
  2. AMLODIPINE [Concomitant]
     Indication: HYPERTENSION
     Dosage: EACH MORNING
     Route: 048
     Dates: start: 20120731, end: 20120801

REACTIONS (1)
  - Hallucination [Recovered/Resolved]
